FAERS Safety Report 8083015-4 (Version None)
Quarter: 2012Q1

REPORT INFORMATION
  Report Type: 
  Country: None (occurrence: None)
  Receive Date: 20120127
  Receipt Date: 20110228
  Transmission Date: 20120608
  Serious: No
  Sender: FDA-Public Use
  Company Number: US-ABBOTT-11P-163-0708477-00

PATIENT
  Sex: Male
  Weight: 86.26 kg

DRUGS (4)
  1. DYAZIDE [Concomitant]
     Indication: HYPERTENSION
  2. IMITREX [Concomitant]
     Indication: MIGRAINE
  3. ZYRTEC-D 12 HOUR [Concomitant]
     Indication: HYPERSENSITIVITY
  4. HUMIRA [Suspect]
     Indication: PSORIASIS
     Dates: start: 20100101

REACTIONS (2)
  - DRUG DOSE OMISSION [None]
  - PSORIASIS [None]
